FAERS Safety Report 5170719-6 (Version None)
Quarter: 2006Q4

REPORT INFORMATION
  Report Type: 
  Country: None (occurrence: None)
  Receive Date: 20060919
  Receipt Date: 20060620
  Transmission Date: 20070319
  Serious: No
  Sender: FDA-Public Use
  Company Number: 2006US001139

PATIENT
  Age: 81 Year
  Sex: Female

DRUGS (6)
  1. VESICARE [Suspect]
     Indication: INCONTINENCE
     Dosage: 5 MG, UID/QD, ORAL
     Route: 048
     Dates: start: 20060201, end: 20060323
  2. METFORMIN HCL [Concomitant]
  3. TRAZODONE HCL [Concomitant]
  4. HYDROCHLOROTHIAZIDE [Concomitant]
  5. ATIVAN [Concomitant]
  6. LIPITOR [Concomitant]

REACTIONS (1)
  - CONSTIPATION [None]
